FAERS Safety Report 5916782-3 (Version None)
Quarter: 2008Q4

REPORT INFORMATION
  Report Type: 
  Country: None (occurrence: None)
  Receive Date: 20081013
  Receipt Date: 20081001
  Transmission Date: 20090506
  Serious: Yes (Other)
  Sender: FDA-Public Use
  Company Number: BR-WYE-H06338408

PATIENT
  Age: 48 Year
  Sex: Female
  Weight: 66 kg

DRUGS (1)
  1. PANTOZOL [Suspect]
     Indication: ABDOMINAL PAIN UPPER
     Route: 048
     Dates: start: 20080929, end: 20080930

REACTIONS (5)
  - BURNING SENSATION [None]
  - GENERALISED ERYTHEMA [None]
  - PRURITUS [None]
  - RASH [None]
  - THROAT TIGHTNESS [None]
